FAERS Safety Report 21618604 (Version 1)
Quarter: 2022Q4

REPORT INFORMATION
  Report Type: Spontaneous
  Country: IT (occurrence: IT)
  Receive Date: 20221119
  Receipt Date: 20221119
  Transmission Date: 20230113
  Serious: Yes (Hospitalization)
  Sender: FDA-Public Use
  Company Number: None

PATIENT
  Age: 41 Year
  Sex: Female

DRUGS (1)
  1. LORAZEPAM [Suspect]
     Active Substance: LORAZEPAM
     Indication: Product used for unknown indication
     Dosage: UNK (DOSAGGIO: 20 UNITA DI MISURA MILLIGRAMMI FREQUENZA SOMMINISTRAZIONE: TOTALE VIA SOMMINISTRAZION
     Route: 065
     Dates: start: 20221024, end: 20221024

REACTIONS (2)
  - Drug abuse [Recovering/Resolving]
  - Altered state of consciousness [Recovering/Resolving]

NARRATIVE: CASE EVENT DATE: 20221024
